FAERS Safety Report 21517458 (Version 1)
Quarter: 2022Q4

REPORT INFORMATION
  Report Type: Spontaneous
  Country: US (occurrence: US)
  Receive Date: 20221028
  Receipt Date: 20221028
  Transmission Date: 20230112
  Serious: No
  Sender: FDA-Public Use
  Company Number: US-UNITED THERAPEUTICS-UNT-2022-024606

PATIENT
  Sex: Female
  Weight: 107.48 kg

DRUGS (4)
  1. REMODULIN [Suspect]
     Active Substance: TREPROSTINIL
     Indication: Pulmonary arterial hypertension
     Dosage: UNK, CONTINUING
     Route: 058
     Dates: start: 20220919
  2. REMODULIN [Suspect]
     Active Substance: TREPROSTINIL
     Dosage: 0.0818 ?G/KG, CONTINUING
     Route: 058
     Dates: start: 2022
  3. AMBRISENTAN [Concomitant]
     Active Substance: AMBRISENTAN
     Indication: Product used for unknown indication
     Dosage: UNK
     Route: 065
  4. TADALAFIL [Concomitant]
     Active Substance: TADALAFIL
     Indication: Product used for unknown indication
     Dosage: UNK
     Route: 065

REACTIONS (4)
  - Infusion site pain [Unknown]
  - Infusion site discharge [Unknown]
  - Oedema [Unknown]
  - Fluid retention [Unknown]

NARRATIVE: CASE EVENT DATE: 20220101
